FAERS Safety Report 11591015 (Version 2)
Quarter: 2015Q4

REPORT INFORMATION
  Report Type: Report from Study
  Country: GB (occurrence: GB)
  Receive Date: 20151003
  Receipt Date: 20151013
  Transmission Date: 20160304
  Serious: Yes (Other)
  Sender: FDA-Public Use
  Company Number: GB-ACCORD-034118

PATIENT

DRUGS (1)
  1. MITOMYCIN. [Suspect]
     Active Substance: MITOMYCIN
     Indication: PRODUCT USED FOR UNKNOWN INDICATION
     Dosage: SUBCONJUNCTIVAL APPLICATION OF MITOMYCIN C
     Route: 057

REACTIONS (1)
  - Choroidal haemorrhage [Unknown]
